FAERS Safety Report 10638827 (Version 1)
Quarter: 2014Q4

REPORT INFORMATION
  Report Type: Spontaneous
  Country: US (occurrence: US)
  Receive Date: 20141208
  Receipt Date: 20141208
  Transmission Date: 20150529
  Serious: Yes (Other)
  Sender: FDA-Public Use
  Company Number: US-TEVA-527331USA

PATIENT
  Age: 33 Year
  Sex: Female
  Weight: 75.82 kg

DRUGS (1)
  1. PARAGARD T380A [Suspect]
     Active Substance: COPPER
     Indication: CONTRACEPTION
     Route: 015
     Dates: start: 20141106, end: 20141203

REACTIONS (6)
  - Abdominal pain [Unknown]
  - Device dislocation [Recovered/Resolved]
  - Dysmenorrhoea [Unknown]
  - Menorrhagia [Unknown]
  - Vaginal haemorrhage [Unknown]
  - Uterine tenderness [Unknown]

NARRATIVE: CASE EVENT DATE: 20141123
